FAERS Safety Report 25343114 (Version 1)
Quarter: 2025Q2

REPORT INFORMATION
  Report Type: Spontaneous
  Country: CN (occurrence: CN)
  Receive Date: 20250521
  Receipt Date: 20250521
  Transmission Date: 20250717
  Serious: Yes (Other)
  Sender: BAYER HEALTHCARE PHARMACEUTICALS INC.
  Company Number: CN-BAYER-2025A068242

PATIENT
  Age: 80 Year
  Sex: Female
  Weight: 70 kg

DRUGS (1)
  1. AVELOX [Suspect]
     Active Substance: MOXIFLOXACIN HYDROCHLORIDE
     Indication: Urinary tract infection
     Dosage: 0.4 G, QD
     Route: 048
     Dates: start: 20250428, end: 20250430

REACTIONS (5)
  - Mental disorder [Recovered/Resolved]
  - Delirium [Recovered/Resolved]
  - Disorganised speech [Recovered/Resolved]
  - Product use in unapproved indication [None]
  - Product prescribing issue [None]

NARRATIVE: CASE EVENT DATE: 20250428
